FAERS Safety Report 16471628 (Version 5)
Quarter: 2020Q1

REPORT INFORMATION
  Report Type: Other
  Country: US (occurrence: US)
  Receive Date: 20190624
  Receipt Date: 20200211
  Transmission Date: 20200409
  Serious: No
  Sender: FDA-Public Use
  Company Number: US-TRIS PHARMA, INC.-19US000018

PATIENT

DRUGS (6)
  1. HYDROCODONE + APAP [Suspect]
     Active Substance: ACETAMINOPHEN\HYDROCODONE BITARTRATE
     Indication: FIBROMYALGIA
     Dosage: UNK
     Route: 065
     Dates: start: 20191123
  2. HYDROCODONE + APAP [Suspect]
     Active Substance: ACETAMINOPHEN\HYDROCODONE BITARTRATE
     Dosage: 10 MILLIGRAM, Q 4 HR
     Route: 065
  3. FLEXERIL [Concomitant]
     Active Substance: CYCLOBENZAPRINE HYDROCHLORIDE
     Indication: SPINAL OSTEOARTHRITIS
  4. HYDROCODONE + APAP [Suspect]
     Active Substance: ACETAMINOPHEN\HYDROCODONE BITARTRATE
     Indication: PLANTAR FASCIITIS
     Dosage: 2 DOSAGE FORM
     Route: 065
  5. HYDROCODONE + APAP [Suspect]
     Active Substance: ACETAMINOPHEN\HYDROCODONE BITARTRATE
     Indication: PAIN
     Dosage: 10 MILLIGRAM
     Route: 065
  6. HYDROCODONE + APAP [Suspect]
     Active Substance: ACETAMINOPHEN\HYDROCODONE BITARTRATE
     Indication: SPINAL OSTEOARTHRITIS
     Dosage: 10 MILLIGRAM, Q 4 HR
     Route: 065

REACTIONS (19)
  - Headache [Recovered/Resolved]
  - Somnolence [Not Recovered/Not Resolved]
  - Chest pain [Unknown]
  - Drug ineffective [Unknown]
  - Palpitations [Unknown]
  - Weight increased [Unknown]
  - Condition aggravated [Recovered/Resolved]
  - Malaise [Not Recovered/Not Resolved]
  - Tachycardia [Not Recovered/Not Resolved]
  - Withdrawal syndrome [Unknown]
  - Nausea [Unknown]
  - Condition aggravated [Not Recovered/Not Resolved]
  - Drug ineffective [Recovered/Resolved]
  - Headache [Not Recovered/Not Resolved]
  - Product formulation issue [Unknown]
  - Abdominal pain upper [Not Recovered/Not Resolved]
  - Fatigue [Unknown]
  - Withdrawal syndrome [Recovered/Resolved]
  - Dizziness [Not Recovered/Not Resolved]

NARRATIVE: CASE EVENT DATE: 201812
